FAERS Safety Report 7115327-2 (Version None)
Quarter: 2010Q4

REPORT INFORMATION
  Report Type: 
  Country: None (occurrence: None)
  Receive Date: 20101122
  Receipt Date: 20101111
  Transmission Date: 20110411
  Serious: Yes (Hospitalization)
  Sender: FDA-Public Use
  Company Number: AU-TYCO HEALTHCARE/MALLINCKRODT-T201002286

PATIENT
  Age: 61 Year
  Sex: Male

DRUGS (1)
  1. PENNSAID [Suspect]
     Dosage: UNK

REACTIONS (1)
  - HAEMOLYTIC ANAEMIA [None]
